FAERS Safety Report 8384170-9 (Version None)
Quarter: 2012Q2

REPORT INFORMATION
  Report Type: 
  Country: None (occurrence: None)
  Receive Date: 20120524
  Receipt Date: 20010406
  Transmission Date: 20120825
  Serious: Yes (Death, Life-Threatening, Other)
  Sender: FDA-Public Use
  Company Number: US-ROCHE-253902

PATIENT
  Sex: Female
  Weight: 49 kg

DRUGS (2)
  1. ORTHO TRI-CYCLEN [Concomitant]
     Indication: CONTRACEPTION
  2. ACCUTANE [Suspect]
     Indication: ACNE
     Route: 048

REACTIONS (2)
  - DEPRESSION [None]
  - COMPLETED SUICIDE [None]
